FAERS Safety Report 8199805-3 (Version None)
Quarter: 2012Q1

REPORT INFORMATION
  Report Type: 
  Country: None (occurrence: None)
  Receive Date: 20120312
  Receipt Date: 20120229
  Transmission Date: 20120608
  Serious: Yes (Hospitalization)
  Sender: FDA-Public Use
  Company Number: 2005BI018684

PATIENT
  Age: 63 Year
  Sex: Female
  Weight: 44 kg

DRUGS (2)
  1. AVONEX [Suspect]
     Indication: MULTIPLE SCLEROSIS
     Route: 030
  2. PREMPRO [Concomitant]

REACTIONS (6)
  - MEMORY IMPAIRMENT [None]
  - MENTAL DISORDER [None]
  - PANIC REACTION [None]
  - BREAST CANCER [None]
  - LOSS OF CONTROL OF LEGS [None]
  - THYROID DISORDER [None]
